FAERS Safety Report 16144658 (Version 1)
Quarter: 2019Q2

REPORT INFORMATION
  Report Type: Spontaneous
  Country: US (occurrence: US)
  Receive Date: 20190401
  Receipt Date: 20190401
  Transmission Date: 20190711
  Serious: Yes (Other)
  Sender: FDA-Public Use
  Company Number: None

PATIENT
  Age: 62 Year
  Sex: Female
  Weight: 66.6 kg

DRUGS (9)
  1. ALLEGRA [Concomitant]
     Active Substance: FEXOFENADINE HYDROCHLORIDE
  2. VITAMIN D NOS [Concomitant]
     Active Substance: VITAMIN D NOS
  3. MULTIVITAMIN [Concomitant]
     Active Substance: VITAMINS
  4. PREVACID [Concomitant]
     Active Substance: LANSOPRAZOLE
  5. ZOCOR [Concomitant]
     Active Substance: SIMVASTATIN
  6. AJOVY [Suspect]
     Active Substance: FREMANEZUMAB-VFRM
     Indication: MIGRAINE
     Dosage: ?          QUANTITY:1 INJECTION(S);OTHER FREQUENCY:EVERY 4 WEEKS;?
     Route: 058
     Dates: start: 20181128, end: 20190325
  7. MAGNESIUM CITRATE. [Concomitant]
     Active Substance: MAGNESIUM CITRATE
  8. GABAPENTIN. [Concomitant]
     Active Substance: GABAPENTIN
  9. VALTREX [Concomitant]
     Active Substance: VALACYCLOVIR HYDROCHLORIDE

REACTIONS (2)
  - Injection site rash [None]
  - Pruritus [None]

NARRATIVE: CASE EVENT DATE: 20190325
